FAERS Safety Report 24402148 (Version 1)
Quarter: 2024Q4

REPORT INFORMATION
  Report Type: Spontaneous
  Country: US (occurrence: US)
  Receive Date: 20241007
  Receipt Date: 20241007
  Transmission Date: 20250115
  Serious: Yes (Hospitalization, Other)
  Sender: AMNEAL
  Company Number: US-AMNEAL PHARMACEUTICALS-2024-AMRX-03578

PATIENT
  Age: 66 Year
  Sex: Male

DRUGS (3)
  1. SILDENAFIL [Suspect]
     Active Substance: SILDENAFIL
     Indication: Pulmonary hypertension
     Dosage: 20 MILLIGRAM, 3X/DAY
     Route: 048
  2. TREPROSTINIL [Concomitant]
     Active Substance: TREPROSTINIL
     Indication: Pulmonary hypertension
     Dosage: 04 TIMES DAILY
  3. TREPROSTINIL [Concomitant]
     Active Substance: TREPROSTINIL
     Dosage: UP TITRATED

REACTIONS (1)
  - Acute psychosis [Recovered/Resolved]
